FAERS Safety Report 23972252 (Version 2)
Quarter: 2024Q4

REPORT INFORMATION
  Report Type: Spontaneous
  Country: US (occurrence: US)
  Receive Date: 20240613
  Receipt Date: 20241217
  Transmission Date: 20250115
  Serious: No
  Sender: PFIZER
  Company Number: US-PFIZER INC-PV202400077175

PATIENT
  Age: 68 Year
  Sex: Female
  Weight: 95.873 kg

DRUGS (1)
  1. IBRANCE [Suspect]
     Active Substance: PALBOCICLIB
     Dosage: 125 MG, CYCLIC [ONCE DAILY WITH OR WITHOUT FOOD ON DAYS 1-21 EVERY 28 DAY CYCLE]
     Route: 048

REACTIONS (1)
  - Full blood count abnormal [Unknown]
